FAERS Safety Report 12346863 (Version 1)
Quarter: 2016Q2

REPORT INFORMATION
  Report Type: Spontaneous
  Country: IN (occurrence: IN)
  Receive Date: 20160509
  Receipt Date: 20160509
  Transmission Date: 20160815
  Serious: Yes (Other)
  Sender: FDA-Public Use
  Company Number: IN-SA-2016SA086900

PATIENT
  Age: 45 Year
  Sex: Male

DRUGS (1)
  1. CHLOROQUINE. [Suspect]
     Active Substance: CHLOROQUINE
     Indication: RHEUMATOID ARTHRITIS
     Route: 048

REACTIONS (10)
  - Visual impairment [Not Recovered/Not Resolved]
  - Retinal pigment epitheliopathy [Not Recovered/Not Resolved]
  - Optic nerve injury [Not Recovered/Not Resolved]
  - Optic atrophy [Not Recovered/Not Resolved]
  - Strabismus [Not Recovered/Not Resolved]
  - Fundoscopy [Not Recovered/Not Resolved]
  - Maculopathy [Not Recovered/Not Resolved]
  - Pupillary reflex impaired [Not Recovered/Not Resolved]
  - Visual acuity tests abnormal [Not Recovered/Not Resolved]
  - Macular pigmentation [Not Recovered/Not Resolved]
